FAERS Safety Report 7880649-4 (Version None)
Quarter: 2011Q4

REPORT INFORMATION
  Report Type: 
  Country: None (occurrence: None)
  Receive Date: 20111101
  Receipt Date: 20111027
  Transmission Date: 20120403
  Serious: Yes (Other)
  Sender: FDA-Public Use
  Company Number: CHPA2011US14972

PATIENT
  Sex: Female

DRUGS (1)
  1. EXCEDRIN TENSION HEADACHE [Suspect]
     Indication: HEADACHE
     Dosage: TAKE IT EVERYDAY RELIGIOUSLY
     Route: 065

REACTIONS (4)
  - DRUG DEPENDENCE [None]
  - DISEASE RECURRENCE [None]
  - HEADACHE [None]
  - INCORRECT DRUG ADMINISTRATION DURATION [None]
